FAERS Safety Report 6861123-0 (Version None)
Quarter: 2010Q3

REPORT INFORMATION
  Report Type: 
  Country: None (occurrence: None)
  Receive Date: 20100720
  Receipt Date: 20100708
  Transmission Date: 20110219
  Serious: Yes (Other)
  Sender: FDA-Public Use
  Company Number: US-PFIZER INC-2008038535

PATIENT
  Sex: Female
  Weight: 83 kg

DRUGS (6)
  1. CHANTIX [Suspect]
     Indication: SMOKING CESSATION THERAPY
     Dosage: UNK
     Route: 048
     Dates: start: 20080101, end: 20080101
  2. CHANTIX [Suspect]
     Dosage: 0.5 MG, 1X/DAY
     Route: 048
     Dates: start: 20100421, end: 20100401
  3. CHANTIX [Suspect]
     Dosage: 1 MG, 2X/DAY
     Route: 048
     Dates: start: 20100401
  4. HYDROCHLOROTHIAZIDE [Concomitant]
     Indication: HYPERTENSION
     Dosage: UNK
  5. PRAVASTATIN [Concomitant]
     Indication: BLOOD CHOLESTEROL INCREASED
     Dosage: UNK
  6. PREMARIN [Concomitant]
     Indication: ENDOCRINE DISORDER
     Dosage: UNK

REACTIONS (7)
  - ASTHENIA [None]
  - BLOOD CHOLESTEROL INCREASED [None]
  - DRUG INEFFECTIVE [None]
  - HYPERPHAGIA [None]
  - STRESS [None]
  - WEIGHT INCREASED [None]
  - WHEEZING [None]
